FAERS Safety Report 8447372-9 (Version None)
Quarter: 2012Q2

REPORT INFORMATION
  Report Type: 
  Country: None (occurrence: None)
  Receive Date: 20120619
  Receipt Date: 20120615
  Transmission Date: 20120825
  Serious: Yes (Other)
  Sender: FDA-Public Use
  Company Number: PHHY2012NL051902

PATIENT
  Sex: Female

DRUGS (3)
  1. ZOMETA [Suspect]
     Dosage: 4 MG/100 ML, ONCE EVERY 4 WEEKS
     Dates: start: 20120615
  2. ZOMETA [Suspect]
     Dosage: 4 MG/100 ML, ONCE EVERY 12 WEEKS
     Dates: start: 20120423
  3. ZOMETA [Suspect]
     Indication: BREAST CANCER METASTATIC
     Dosage: 4 MG/100 ML, ONCE EVERY 12 WEEKS

REACTIONS (2)
  - COUGH [None]
  - RIB FRACTURE [None]
